FAERS Safety Report 14980081 (Version 1)
Quarter: 2018Q2

REPORT INFORMATION
  Report Type: Spontaneous
  Country: ES (occurrence: ES)
  Receive Date: 20180606
  Receipt Date: 20180606
  Transmission Date: 20180711
  Serious: Yes (Hospitalization)
  Sender: FDA-Public Use
  Company Number: ES-TEVA-2018-ES-902874

PATIENT
  Age: 79 Year
  Sex: Female

DRUGS (2)
  1. CARBOPLATINO (2323A) [Suspect]
     Active Substance: CARBOPLATIN
     Indication: SMALL CELL LUNG CANCER
     Dosage: 6.6667 MILLIGRAM DAILY;
     Route: 042
     Dates: start: 20170925, end: 20171121
  2. ETOPOSIDO (518A) [Suspect]
     Active Substance: ETOPOSIDE
     Indication: SMALL CELL LUNG CANCER
     Dosage: 173MG FOR 3 DAYS EVERY 30 DAYS
     Route: 065
     Dates: start: 20170925, end: 20171123

REACTIONS (1)
  - Febrile neutropenia [Recovered/Resolved]

NARRATIVE: CASE EVENT DATE: 20171128
